FAERS Safety Report 9639932 (Version 1)
Quarter: 2013Q4

REPORT INFORMATION
  Report Type: Spontaneous
  Country: US (occurrence: None)
  Receive Date: 20131021
  Receipt Date: 20131021
  Transmission Date: 20140711
  Serious: Yes (Life-Threatening, Disabling)
  Sender: FDA-Public Use
  Company Number: None

PATIENT
  Age: 36 Year
  Sex: Female
  Weight: 94.8 kg

DRUGS (1)
  1. CYMBALTA [Suspect]
     Indication: PAIN
     Dosage: 1 CASPSULE BY MOUTH AT BED TIME
     Route: 048
     Dates: start: 20111108, end: 20110923

REACTIONS (20)
  - Myalgia [None]
  - Muscle spasms [None]
  - Nausea [None]
  - Vertigo [None]
  - Tinnitus [None]
  - Depression [None]
  - Suicidal ideation [None]
  - Pain [None]
  - Anger [None]
  - Abdominal pain upper [None]
  - Diarrhoea [None]
  - Rectal haemorrhage [None]
  - Fear [None]
  - Crying [None]
  - Fall [None]
  - Laceration [None]
  - Job dissatisfaction [None]
  - Ligament sprain [None]
  - Feeling of despair [None]
  - Impaired work ability [None]
